FAERS Safety Report 24327385 (Version 2)
Quarter: 2024Q3

REPORT INFORMATION
  Report Type: Spontaneous
  Country: PT (occurrence: PT)
  Receive Date: 20240917
  Receipt Date: 20240927
  Transmission Date: 20241016
  Serious: Yes (Death, Life-Threatening, Other)
  Sender: RANBAXY
  Company Number: PT-SUN PHARMACEUTICAL INDUSTRIES LTD-2024R1-468059

PATIENT
  Age: 94 Year
  Sex: Female

DRUGS (9)
  1. IBUPROFEN [Suspect]
     Active Substance: IBUPROFEN
     Indication: Neuralgia
     Dosage: 400 MILLIGRAM, TID
     Route: 065
  2. MIDAZOLAM [Suspect]
     Active Substance: MIDAZOLAM
     Indication: Neuralgia
     Dosage: 7.5 MILLIGRAM
     Route: 065
  3. MIDAZOLAM [Suspect]
     Active Substance: MIDAZOLAM
     Dosage: 2.5 MILLIGRAM, PRN
     Route: 065
  4. MORPHINE [Suspect]
     Active Substance: MORPHINE
     Indication: Neuralgia
     Dosage: 20 MILLIGRAM
     Route: 058
  5. MORPHINE [Suspect]
     Active Substance: MORPHINE
     Indication: Neuralgia
     Dosage: UNK UNK, BID
     Route: 065
  6. ACETAMINOPHEN [Suspect]
     Active Substance: ACETAMINOPHEN
     Indication: Neuralgia
     Dosage: 1000 MILLIGRAM, TID
     Route: 065
  7. BUTYLSCOPOLAMINE [Suspect]
     Active Substance: BUTYLSCOPOLAMINE
     Indication: Product used for unknown indication
     Dosage: 160 MILLIGRAM
     Route: 058
  8. KETAMINE [Suspect]
     Active Substance: KETAMINE
     Indication: Allodynia
     Dosage: 2 MILLIGRAM/KILOGRAM, QD
     Route: 065
  9. KETAMINE [Suspect]
     Active Substance: KETAMINE
     Dosage: 300 MILLIGRAM(48 HOURS)
     Route: 065

REACTIONS (3)
  - Treatment failure [Fatal]
  - Condition aggravated [Fatal]
  - Nervous system disorder [Fatal]
